FAERS Safety Report 7215896-8 (Version None)
Quarter: 2011Q1

REPORT INFORMATION
  Report Type: 
  Country: None (occurrence: None)
  Receive Date: 20110107
  Receipt Date: 20110103
  Transmission Date: 20110831
  Serious: Yes (Hospitalization)
  Sender: FDA-Public Use
  Company Number: FR-ASTRAZENECA-2011SE00352

PATIENT
  Age: 22851 Day
  Sex: Female

DRUGS (5)
  1. MEROPENEM [Suspect]
     Indication: PNEUMONIA
     Route: 042
     Dates: start: 20101103, end: 20101121
  2. BACTRIM [Suspect]
     Indication: PNEUMOCYSTIS JIROVECI PNEUMONIA
     Route: 042
     Dates: end: 20101124
  3. KEPPRA [Suspect]
     Indication: GRAND MAL CONVULSION
     Route: 042
     Dates: start: 20101023, end: 20101125
  4. CANCIDAS [Suspect]
     Indication: BRONCHOPULMONARY ASPERGILLOSIS
     Route: 042
     Dates: start: 20101102, end: 20101124
  5. VANCOMYCIN [Suspect]
     Indication: PNEUMONIA
     Route: 042
     Dates: start: 20101111, end: 20101119

REACTIONS (2)
  - PRURITUS [None]
  - DERMATITIS EXFOLIATIVE [None]
